FAERS Safety Report 13341185 (Version 2)
Quarter: 2017Q3

REPORT INFORMATION
  Report Type: Spontaneous
  Country: US (occurrence: US)
  Receive Date: 20170316
  Receipt Date: 20170702
  Transmission Date: 20171127
  Serious: Yes (Other)
  Sender: FDA-Public Use
  Company Number: PHHY2017US039758

PATIENT
  Age: 57 Year
  Sex: Female

DRUGS (5)
  1. COMBIPATCH [Suspect]
     Active Substance: ESTRADIOL\NORETHINDRONE ACETATE
     Dosage: CUTTING 50/140 MG PATCH INTO HALF
     Route: 062
     Dates: end: 201611
  2. COMBIPATCH [Suspect]
     Active Substance: ESTRADIOL\NORETHINDRONE ACETATE
     Indication: HORMONE REPLACEMENT THERAPY
     Dosage: 50/140 MG , QW2
     Route: 062
  3. COMBIPATCH [Suspect]
     Active Substance: ESTRADIOL\NORETHINDRONE ACETATE
     Indication: HOT FLUSH
     Dosage: 50/140 MG , QW
     Route: 062
  4. COMBIPATCH [Suspect]
     Active Substance: ESTRADIOL\NORETHINDRONE ACETATE
     Dosage: CUTTING 50/250 MG PATCH INTO HALF/ QUARTER/ONE EIGHTH
     Route: 062
     Dates: start: 201701, end: 2017
  5. COMBIPATCH [Suspect]
     Active Substance: ESTRADIOL\NORETHINDRONE ACETATE
     Dosage: 50/140 MG QW2
     Route: 062
     Dates: start: 2017

REACTIONS (14)
  - Palpitations [Not Recovered/Not Resolved]
  - Drug effect increased [Recovered/Resolved]
  - Wrong technique in product usage process [Not Recovered/Not Resolved]
  - Tinnitus [Not Recovered/Not Resolved]
  - Dyskinesia [Not Recovered/Not Resolved]
  - Hot flush [Recovered/Resolved]
  - Condition aggravated [Not Recovered/Not Resolved]
  - Mental impairment [Not Recovered/Not Resolved]
  - Off label use [Unknown]
  - Electrolyte depletion [Not Recovered/Not Resolved]
  - Dizziness [Not Recovered/Not Resolved]
  - Drug dose omission [Recovered/Resolved]
  - Dehydration [Recovered/Resolved]
  - Heart rate irregular [Not Recovered/Not Resolved]

NARRATIVE: CASE EVENT DATE: 201611
